FAERS Safety Report 24045130 (Version 1)
Quarter: 2024Q3

REPORT INFORMATION
  Report Type: Spontaneous
  Country: US (occurrence: US)
  Receive Date: 20240703
  Receipt Date: 20240703
  Transmission Date: 20241017
  Serious: No
  Sender: ALKERMES
  Company Number: US-ALKERMES INC.-ALK-2024-001739

PATIENT
  Sex: Female

DRUGS (1)
  1. VIVITROL [Suspect]
     Active Substance: NALTREXONE
     Indication: Alcoholism
     Dosage: 380 MILLIGRAM, Q4WK
     Route: 030

REACTIONS (4)
  - Lip swelling [Unknown]
  - Rash pruritic [Unknown]
  - Hypersensitivity [Unknown]
  - Chest pain [Unknown]
